FAERS Safety Report 25462638 (Version 1)
Quarter: 2025Q2

REPORT INFORMATION
  Report Type: Spontaneous
  Country: US (occurrence: US)
  Receive Date: 20250620
  Receipt Date: 20250620
  Transmission Date: 20250717
  Serious: Yes (Other)
  Sender: TEVA
  Company Number: US-TEVA-VS-3341582

PATIENT
  Age: 33 Year
  Sex: Female

DRUGS (2)
  1. METOCLOPRAMIDE [Suspect]
     Active Substance: METOCLOPRAMIDE
     Indication: Product used for unknown indication
     Route: 048
  2. TORSEMIDE [Suspect]
     Active Substance: TORSEMIDE
     Indication: Product used for unknown indication
     Route: 065

REACTIONS (5)
  - Malaise [Not Recovered/Not Resolved]
  - Metabolic disorder [Unknown]
  - Recalled product administered [Unknown]
  - Drug ineffective [Unknown]
  - Product commingling [Unknown]
